FAERS Safety Report 9519987 (Version 1)
Quarter: 2013Q1

REPORT INFORMATION
  Report Type: Spontaneous
  Country: US (occurrence: None)
  Receive Date: 20130305
  Receipt Date: 20130305
  Transmission Date: 20140127
  Serious: Yes (Other)
  Sender: FDA-Public Use
  Company Number: 163-21880-12013075

PATIENT
  Age: 78 Year
  Sex: Female
  Weight: 69.4 kg

DRUGS (10)
  1. REVLIMID [Suspect]
     Indication: PLASMA CELL MYELOMA
     Dosage: Q DAY X 21D, THEN 7D OFF
     Route: 048
     Dates: start: 20111104, end: 20120120
  2. OCUVITE (OCUVITE) [Concomitant]
  3. WARFARIN (WARFARIN) [Concomitant]
  4. FUROSEMIDE (FUROSEMIDE) [Concomitant]
  5. KCL (POTASSIUM CHLORIDE) [Concomitant]
  6. VENLAFAXINE (VENLAFAXINE) [Concomitant]
  7. METOLAZONE (METOLAZONE) [Concomitant]
  8. DIOVAN (VALSARTAN) [Concomitant]
  9. GLYBURIDE (GLIBENCLAMIDE) [Concomitant]
  10. WELCHOL (COLESEVELAM HYDROCHLORIDE) (625 MILLIGRAM, TABLET) (COLESEVELAM HYDROCHLORIDE) [Concomitant]

REACTIONS (1)
  - Cardiac failure congestive [None]
